FAERS Safety Report 6725149-X (Version None)
Quarter: 2010Q2

REPORT INFORMATION
  Report Type: 
  Country: None (occurrence: None)
  Receive Date: 20100514
  Receipt Date: 20100503
  Transmission Date: 20101027
  Serious: Yes (Other)
  Sender: FDA-Public Use
  Company Number: FR-JNJFOC-20100500638

PATIENT

DRUGS (2)
  1. REMICADE [Suspect]
     Indication: INFLAMMATORY BOWEL DISEASE
  2. AZATHIOPRINE [Suspect]
     Indication: INFLAMMATORY BOWEL DISEASE

REACTIONS (1)
  - LYMPHOPROLIFERATIVE DISORDER [None]
